FAERS Safety Report 6123178-0 (Version None)
Quarter: 2009Q1

REPORT INFORMATION
  Report Type: 
  Country: None (occurrence: None)
  Receive Date: 20090318
  Receipt Date: 20090309
  Transmission Date: 20090719
  Serious: Yes (Other)
  Sender: FDA-Public Use
  Company Number: PHHY2009JP09055

PATIENT

DRUGS (1)
  1. LAMISIL [Suspect]
     Dosage: 1 DF, QD
     Route: 048
     Dates: start: 20090201

REACTIONS (2)
  - SUDDEN HEARING LOSS [None]
  - TINNITUS [None]
